FAERS Safety Report 6710098-3 (Version None)
Quarter: 2010Q2

REPORT INFORMATION
  Report Type: 
  Country: None (occurrence: None)
  Receive Date: 20100504
  Receipt Date: 20100419
  Transmission Date: 20101027
  Serious: Yes (Hospitalization)
  Sender: FDA-Public Use
  Company Number: NL-MEDIMMUNE-MEDI-0011104

PATIENT
  Sex: Male
  Weight: 10 kg

DRUGS (2)
  1. SYNAGIS [Suspect]
     Route: 030
     Dates: start: 20080928, end: 20091126
  2. SYNAGIS [Suspect]
     Route: 030
     Dates: start: 20091223

REACTIONS (6)
  - DEHYDRATION [None]
  - DIARRHOEA [None]
  - ECZEMA [None]
  - OXYGEN SATURATION DECREASED [None]
  - PYREXIA [None]
  - ROTAVIRUS INFECTION [None]
